FAERS Safety Report 5719500-7 (Version None)
Quarter: 2008Q2

REPORT INFORMATION
  Report Type: 
  Country: None (occurrence: None)
  Receive Date: 20080428
  Receipt Date: 20080417
  Transmission Date: 20081010
  Serious: Yes (Other)
  Sender: FDA-Public Use
  Company Number: US-ROCHE-559257

PATIENT
  Sex: Female
  Weight: 91.6 kg

DRUGS (1)
  1. BONIVA [Suspect]
     Indication: OSTEOPOROSIS
     Route: 048
     Dates: start: 20080317

REACTIONS (4)
  - CHEST PAIN [None]
  - GASTROOESOPHAGEAL REFLUX DISEASE [None]
  - MUSCLE SPASMS [None]
  - PHARYNGEAL OEDEMA [None]
